FAERS Safety Report 16849226 (Version 1)
Quarter: 2019Q4

REPORT INFORMATION
  Report Type: Spontaneous
  Country: US (occurrence: US)
  Receive Date: 20190924
  Receipt Date: 20190924
  Transmission Date: 20200122
  Serious: Yes (Hospitalization)
  Sender: FDA-Public Use
  Company Number: None

PATIENT
  Age: 54 Year
  Sex: Female

DRUGS (6)
  1. AMLODIPINE [Suspect]
     Active Substance: AMLODIPINE BESYLATE
     Indication: BLOOD PRESSURE MEASUREMENT
     Dosage: ?          QUANTITY:2 TABLET(S);?
     Route: 048
     Dates: start: 20190820, end: 20190827
  2. DAILY VITAMINS [Concomitant]
     Active Substance: VITAMINS
  3. IRON [Concomitant]
     Active Substance: IRON
  4. OMRON [Concomitant]
  5. BLOOD PRESSURE MACHINE [Concomitant]
  6. MAGNESIUM [Concomitant]
     Active Substance: MAGNESIUM

REACTIONS (9)
  - Hyperhidrosis [None]
  - Paradoxical drug reaction [None]
  - Heart rate increased [None]
  - Recalled product [None]
  - Product formulation issue [None]
  - Cardiac discomfort [None]
  - Hypertension [None]
  - Product quality issue [None]
  - Carcinogenicity [None]

NARRATIVE: CASE EVENT DATE: 20190827
